FAERS Safety Report 8735774 (Version 2)
Quarter: 2012Q4

REPORT INFORMATION
  Report Type: 
  Country: US (occurrence: US)
  Receive Date: 20120822
  Receipt Date: 20120914
  Transmission Date: 20130627
  Serious: Yes (Other)
  Sender: FDA-Public Use
  Company Number: US-JNJFOC-20120807454

PATIENT
  Age: 58 Year
  Sex: Female
  Weight: 102.97 kg

DRUGS (5)
  1. REMICADE [Suspect]
     Indication: COLITIS ULCERATIVE
     Route: 042
     Dates: start: 201206, end: 201206
  2. REMICADE [Suspect]
     Indication: COLITIS ULCERATIVE
     Route: 042
     Dates: start: 200603
  3. SIMVASTATIN [Concomitant]
     Indication: LIPIDS
     Route: 065
  4. ACCUPRIL [Concomitant]
     Route: 065
  5. MULTIVITAMINS [Concomitant]
     Route: 065

REACTIONS (2)
  - Post herpetic neuralgia [Recovered/Resolved]
  - Herpes zoster [Recovered/Resolved with Sequelae]
